FAERS Safety Report 10216633 (Version 1)
Quarter: 2014Q2

REPORT INFORMATION
  Report Type: Spontaneous
  Country: US (occurrence: US)
  Receive Date: 20140604
  Receipt Date: 20140604
  Transmission Date: 20141212
  Serious: No
  Sender: FDA-Public Use
  Company Number: US-PFIZER INC-2014152657

PATIENT
  Sex: Female

DRUGS (7)
  1. NEURONTIN [Suspect]
     Dosage: UNK
  2. ALPRAZOLAM [Suspect]
     Dosage: 1 MG, UNK
  3. AMLODIPINE BESILATE [Suspect]
     Dosage: UNK
  4. CALCIUM [Suspect]
     Dosage: UNK
  5. METOPROLOL [Suspect]
     Dosage: 50 MG, UNK
  6. ASA [Suspect]
     Dosage: 81 MG, UNK
  7. AMITRIPTYLINE [Suspect]
     Dosage: 50 MG, UNK

REACTIONS (1)
  - Drug hypersensitivity [Unknown]
